FAERS Safety Report 9887619 (Version 1)
Quarter: 2013Q4

REPORT INFORMATION
  Report Type: Spontaneous
  Country: US (occurrence: None)
  Receive Date: 20131223
  Receipt Date: 20131223
  Transmission Date: 20140711
  Serious: Yes (Other)
  Sender: FDA-Public Use
  Company Number: 217404

PATIENT
  Age: 32 Year
  Sex: Female

DRUGS (1)
  1. PICATO [Suspect]
     Indication: PRODUCT USED FOR UNKNOWN INDICATION
     Dosage: 1 IN 1 D
     Route: 061
     Dates: start: 20120426, end: 20120428

REACTIONS (4)
  - Pain [None]
  - Swelling face [None]
  - Off label use [None]
  - Erythema [None]
